FAERS Safety Report 17574766 (Version 1)
Quarter: 2020Q1

REPORT INFORMATION
  Report Type: Report from Study
  Country: CA (occurrence: CA)
  Receive Date: 20200324
  Receipt Date: 20200324
  Transmission Date: 20200409
  Serious: Yes (Other)
  Sender: FDA-Public Use
  Company Number: CA-ORION CORPORATION ORION PHARMA-TREX2020-1470

PATIENT
  Age: 46 Year
  Sex: Female

DRUGS (19)
  1. LORAZEPAM. [Concomitant]
     Active Substance: LORAZEPAM
     Route: 065
  2. ACYCLOVIR. [Concomitant]
     Active Substance: ACYCLOVIR
     Route: 065
  3. GABAPENTIN. [Concomitant]
     Active Substance: GABAPENTIN
     Route: 065
  4. LIDOCAINE. [Concomitant]
     Active Substance: LIDOCAINE
     Route: 065
  5. MYCOPHENOLATE [Concomitant]
     Active Substance: MYCOPHENOLIC ACID
     Route: 065
  6. NYSTATIN. [Concomitant]
     Active Substance: NYSTATIN
     Route: 065
  7. FLUCONAZOLE. [Concomitant]
     Active Substance: FLUCONAZOLE
     Route: 065
  8. STATEX [Concomitant]
     Route: 065
  9. DEMEROL [Concomitant]
     Active Substance: MEPERIDINE HYDROCHLORIDE
     Route: 065
  10. DIPHENHYDRAMINE HYDROCHLORIDE. [Concomitant]
     Active Substance: DIPHENHYDRAMINE HYDROCHLORIDE
     Indication: PREMEDICATION
     Route: 042
  11. MORPHINE [Concomitant]
     Active Substance: MORPHINE
     Route: 065
  12. PREDNISONE. [Concomitant]
     Active Substance: PREDNISONE
     Route: 065
  13. CLINDAMYCIN. [Concomitant]
     Active Substance: CLINDAMYCIN
     Route: 065
  14. METHOTREXATE (TRADE NAME UNKNOWN) [Suspect]
     Active Substance: METHOTREXATE
     Indication: PRODUCT USED FOR UNKNOWN INDICATION
     Route: 048
  15. RITUXIMAB. [Suspect]
     Active Substance: RITUXIMAB
     Indication: PEMPHIGUS
     Dosage: CYCLIC EVERY 15 DAYS
     Route: 042
  16. ACETAMINOPHEN. [Concomitant]
     Active Substance: ACETAMINOPHEN
     Dosage: STRENGTH: 650 MG
     Route: 065
  17. RITUXIMAB. [Suspect]
     Active Substance: RITUXIMAB
     Indication: PEMPHIGOID
     Route: 042
  18. AZATHIOPRINE. [Concomitant]
     Active Substance: AZATHIOPRINE
     Route: 065
  19. METHYLPREDNISOLONE. [Concomitant]
     Active Substance: METHYLPREDNISOLONE
     Route: 065

REACTIONS (22)
  - Sepsis [Not Recovered/Not Resolved]
  - Aphthous ulcer [Not Recovered/Not Resolved]
  - Lung abscess [Not Recovered/Not Resolved]
  - Arthritis [Not Recovered/Not Resolved]
  - Pain [Not Recovered/Not Resolved]
  - Product use in unapproved indication [Not Recovered/Not Resolved]
  - Oral mucosal blistering [Not Recovered/Not Resolved]
  - Tongue disorder [Not Recovered/Not Resolved]
  - Anxiety [Not Recovered/Not Resolved]
  - Aphonia [Not Recovered/Not Resolved]
  - Fatigue [Not Recovered/Not Resolved]
  - Influenza [Not Recovered/Not Resolved]
  - Urticaria [Not Recovered/Not Resolved]
  - Blood pressure increased [Not Recovered/Not Resolved]
  - Rash [Not Recovered/Not Resolved]
  - Off label use [Not Recovered/Not Resolved]
  - Blood pressure fluctuation [Not Recovered/Not Resolved]
  - Body temperature increased [Not Recovered/Not Resolved]
  - Pemphigus [Not Recovered/Not Resolved]
  - Pruritus [Not Recovered/Not Resolved]
  - Nausea [Not Recovered/Not Resolved]
  - Ill-defined disorder [Not Recovered/Not Resolved]
